FAERS Safety Report 5688124-2 (Version None)
Quarter: 2008Q1

REPORT INFORMATION
  Report Type: 
  Country: None (occurrence: None)
  Receive Date: 20080327
  Receipt Date: 20080321
  Transmission Date: 20080703
  Serious: Yes (Hospitalization)
  Sender: FDA-Public Use
  Company Number: 2008SP005495

PATIENT
  Age: 56 Year
  Sex: Male
  Weight: 95.2554 kg

DRUGS (13)
  1. PEG-INTRON [Suspect]
     Indication: HEPATITIS C
     Dates: start: 20070406, end: 20080229
  2. RIBAVIRIN [Suspect]
     Indication: HEPATITIS C
     Dosage: PO
     Route: 048
     Dates: start: 20070406, end: 20080229
  3. PROGRAF [Suspect]
     Indication: IMMUNOSUPPRESSION
     Dosage: 2 MG; QAM; PO; 1 MG; QPM; PO
     Route: 048
     Dates: start: 20070126
  4. PROGRAF [Suspect]
     Indication: IMMUNOSUPPRESSION
     Dosage: 2 MG; QAM; PO; 1 MG; QPM; PO
     Route: 048
     Dates: start: 20070126
  5. METOPROLOL (CON.) [Concomitant]
  6. PRILOSEC (CON.) [Concomitant]
  7. LASIX (CON.) [Concomitant]
  8. BACTRIM DS (CON.) [Concomitant]
  9. PROCRIT (CON.) [Concomitant]
  10. NEUPOGEN (CON.) [Concomitant]
  11. FERROUS SULFATE (CON.) [Concomitant]
  12. LOMOTIL (CON.) [Concomitant]
  13. FISH OIL (CON.) [Concomitant]

REACTIONS (2)
  - BLOOD POTASSIUM INCREASED [None]
  - LIVER TRANSPLANT REJECTION [None]
